FAERS Safety Report 8438404-2 (Version None)
Quarter: 2012Q2

REPORT INFORMATION
  Report Type: 
  Country: None (occurrence: None)
  Receive Date: 20120614
  Receipt Date: 20120606
  Transmission Date: 20120825
  Serious: Yes (Hospitalization)
  Sender: FDA-Public Use
  Company Number: AU-ELI_LILLY_AND_COMPANY-AU201202003156

PATIENT
  Sex: Female

DRUGS (2)
  1. FORTEO [Suspect]
     Indication: OSTEOPOROSIS
     Dosage: 20 UG, QD
     Dates: start: 20110808
  2. VITAMIN D [Concomitant]
     Dosage: 3000 IU, UNK

REACTIONS (3)
  - BURSITIS [None]
  - TENDON INJURY [None]
  - VITAMIN D DECREASED [None]
